FAERS Safety Report 8553548-2 (Version None)
Quarter: 2012Q3

REPORT INFORMATION
  Report Type: 
  Country: None (occurrence: None)
  Receive Date: 20120731
  Receipt Date: 20120726
  Transmission Date: 20120928
  Serious: No
  Sender: FDA-Public Use
  Company Number: US-PFIZER INC-2012182542

PATIENT
  Sex: Female

DRUGS (1)
  1. ADVIL PM [Suspect]
     Dosage: UNK, ONCE
     Dates: start: 20120726

REACTIONS (3)
  - NAUSEA [None]
  - HEADACHE [None]
  - ABDOMINAL DISCOMFORT [None]
